FAERS Safety Report 9525324 (Version 1)
Quarter: 2013Q1

REPORT INFORMATION
  Report Type: Spontaneous
  Country: US (occurrence: None)
  Receive Date: 20130314
  Receipt Date: 20130314
  Transmission Date: 20140127
  Serious: No
  Sender: FDA-Public Use
  Company Number: 1212USA004902

PATIENT
  Age: 58 Year
  Sex: Male

DRUGS (11)
  1. VICTRELIS [Suspect]
     Indication: CHRONIC HEPATITIS C
     Route: 048
     Dates: start: 20121025
  2. RIBASPHERE (RIBAVIRIN) [Suspect]
     Dates: start: 201210
  3. PEGASYS [Suspect]
     Dates: start: 201210
  4. CIALIS (TADALAFIL), 20MG [Concomitant]
  5. JANUMET (SITAGLIPTIN PHOSPHATE (+) METFORMIN HYDROCHLORIDE) FILM- COASTED TABLET [Concomitant]
  6. AMARYL (GLIMEPIRIDE) [Concomitant]
  7. ZOLOFT (SERTRALINE HYDROCHLORIDE) [Concomitant]
  8. TEKTURNA (ALISKIREN FUMARATE), 150 MG [Concomitant]
  9. VALTREX (VALACYCLOVIRHYDROCHLORIDE) [Concomitant]
  10. NEXIUM (ESOMEPRAZOLE MAGNESIUM) CAPSULE [Concomitant]
  11. PROCRIT (EPOETIN ALFA) [Concomitant]

REACTIONS (4)
  - Influenza like illness [None]
  - Pruritus [None]
  - Cough [None]
  - Fatigue [None]
